FAERS Safety Report 11351266 (Version 1)
Quarter: 2015Q3

REPORT INFORMATION
  Report Type: Spontaneous
  Country: US (occurrence: US)
  Receive Date: 20150807
  Receipt Date: 20150807
  Transmission Date: 20151125
  Serious: No
  Sender: FDA-Public Use
  Company Number: US-JNJFOC-20141119318

PATIENT
  Age: 22 Year
  Sex: Female
  Weight: 99.79 kg

DRUGS (2)
  1. MENS ROGAINE EXTRA STRENGTH [Suspect]
     Active Substance: MINOXIDIL
     Indication: HAIR GROWTH ABNORMAL
     Dosage: RECOMMENDED DOSAGE
     Route: 061
  2. WOMENS ROGAINE EXTRA STRENGTH [Suspect]
     Active Substance: MINOXIDIL
     Indication: HAIR GROWTH ABNORMAL
     Dosage: RECOMMENDED DOSAGE
     Route: 061
     Dates: start: 20141123

REACTIONS (6)
  - Product use issue [Unknown]
  - Wrong patient received medication [Unknown]
  - Hair texture abnormal [Unknown]
  - Therapeutic response unexpected [Unknown]
  - Product quality issue [Unknown]
  - Incorrect dose administered [Unknown]
